APPROVED DRUG PRODUCT: DEXASPORIN
Active Ingredient: DEXAMETHASONE; NEOMYCIN SULFATE; POLYMYXIN B SULFATE
Strength: 0.1%;EQ 3.5MG BASE/ML;10,000 UNITS/ML
Dosage Form/Route: SUSPENSION/DROPS;OPHTHALMIC
Application: A064135 | Product #001 | TE Code: AT
Applicant: BAUSCH AND LOMB PHARMACEUTICALS INC
Approved: Sep 13, 1995 | RLD: No | RS: No | Type: RX